FAERS Safety Report 19841175 (Version 2)
Quarter: 2021Q4

REPORT INFORMATION
  Report Type: Spontaneous
  Country: US (occurrence: US)
  Receive Date: 20210916
  Receipt Date: 20211217
  Transmission Date: 20220303
  Serious: No
  Sender: FDA-Public Use
  Company Number: US-PFIZER INC-2016195170

PATIENT
  Age: 52 Year
  Sex: Male
  Weight: 83.9 kg

DRUGS (16)
  1. LYRICA [Suspect]
     Active Substance: PREGABALIN
     Indication: Thoracic spinal stenosis
     Dosage: 200 MG, 2X/DAY
     Route: 048
     Dates: start: 20160314
  2. LYRICA [Suspect]
     Active Substance: PREGABALIN
     Indication: Fibromyalgia
     Dosage: 200 MG, 2X/DAY
     Route: 048
     Dates: start: 20160909
  3. LYRICA [Suspect]
     Active Substance: PREGABALIN
     Indication: Pain
     Dosage: 200 MG, 2X/DAY
     Route: 048
     Dates: start: 20161130
  4. LYRICA [Suspect]
     Active Substance: PREGABALIN
     Indication: Lumbar spinal stenosis
     Dosage: 150MG, 4X/DAY (TOTAL OF 600MG) AS NEEDED
     Route: 048
     Dates: start: 20170614
  5. LYRICA [Suspect]
     Active Substance: PREGABALIN
     Indication: Spinal osteoarthritis
     Dosage: 150 MG, 4X/DAY
     Route: 048
  6. LYRICA [Suspect]
     Active Substance: PREGABALIN
     Indication: Back pain
     Dosage: 150 MG, 3X/DAY
  7. LYRICA [Suspect]
     Active Substance: PREGABALIN
     Indication: Sciatica
  8. LIORESAL [Concomitant]
     Active Substance: BACLOFEN
     Dosage: 10 MG, 2X/DAY
     Route: 048
  9. FLEXERIL [Concomitant]
     Active Substance: CYCLOBENZAPRINE HYDROCHLORIDE
     Indication: Muscle spasms
     Dosage: 10 MG, AS NEEDED
     Route: 048
  10. VALIUM [Concomitant]
     Active Substance: DIAZEPAM
     Dosage: 10 MG, 2X/DAY (EVERY 12 HOURS)
     Route: 048
  11. PROZAC [Concomitant]
     Active Substance: FLUOXETINE HYDROCHLORIDE
     Dosage: 40 MG, DAILY
     Route: 048
  12. FLONASE [Concomitant]
     Active Substance: FLUTICASONE PROPIONATE
     Dosage: 2 DF, DAILY (50 MCG/ACTUATION NASAL SPRAY; SIG: 2 SPRAYS BY EACH NOSTRIL ROUTE)
     Route: 045
  13. MOBIC [Concomitant]
     Active Substance: MELOXICAM
     Dosage: 15 MG, DAILY
     Route: 048
  14. DOLOPHINE [Concomitant]
     Active Substance: METHADONE HYDROCHLORIDE
     Dosage: 10 MG, 4X/DAY
     Route: 048
  15. PERCOCET [Concomitant]
     Active Substance: ACETAMINOPHEN\OXYCODONE HYDROCHLORIDE
     Dosage: UNK UNK, 2X/DAY ([OXYCODONE HYDROCHLORIDE: 10 MG/PARACETAMOL: 325 MG])
  16. FLOMAX [Concomitant]
     Active Substance: TAMSULOSIN HYDROCHLORIDE
     Dosage: 0.4 MG, DAILY
     Route: 048

REACTIONS (3)
  - Feeling abnormal [Unknown]
  - Thinking abnormal [Unknown]
  - Intentional dose omission [Unknown]
